FAERS Safety Report 6039039-1 (Version None)
Quarter: 2009Q1

REPORT INFORMATION
  Report Type: 
  Country: None (occurrence: None)
  Receive Date: 20090115
  Receipt Date: 20090109
  Transmission Date: 20090719
  Serious: Yes (Other)
  Sender: FDA-Public Use
  Company Number: US-ALLERGAN-0900251US

PATIENT
  Sex: Female

DRUGS (4)
  1. REFRESH P.M. [Suspect]
     Indication: DRY EYE
     Dosage: UNK, QPM
     Route: 047
  2. REFRESH LIQUIGEL OPHTHALMIC [Suspect]
     Indication: DRY EYE
     Route: 047
  3. BRIMONIDINE TARTRATE [Concomitant]
     Indication: DRUG USE FOR UNKNOWN INDICATION
  4. LOPRESSOR [Concomitant]
     Indication: HYPERTENSION
     Dosage: 100 MG, BID

REACTIONS (1)
  - HYPERTENSION [None]
